FAERS Safety Report 20090574 (Version 1)
Quarter: 2021Q4

REPORT INFORMATION
  Report Type: Spontaneous
  Country: US (occurrence: None)
  Receive Date: 20211118
  Receipt Date: 20211118
  Transmission Date: 20220303
  Serious: Yes (Other)
  Sender: FDA-Public Use
  Company Number: None

PATIENT
  Sex: Male

DRUGS (1)
  1. BOTOX [Suspect]
     Active Substance: ONABOTULINUMTOXINA
     Indication: Dyskinesia
     Dosage: OTHER FREQUENCY : EVER 3 MONTHS;?OTHER ROUTE : LEFT FACIAL MUSCLES;?
     Route: 050
     Dates: start: 20210521

REACTIONS (1)
  - Craniocerebral injury [None]
